FAERS Safety Report 19707310 (Version 1)
Quarter: 2021Q3

REPORT INFORMATION
  Report Type: Spontaneous
  Country: US (occurrence: US)
  Receive Date: 20210816
  Receipt Date: 20210816
  Transmission Date: 20211014
  Serious: No
  Sender: FDA-Public Use
  Company Number: None

PATIENT
  Age: 2 Year
  Sex: Male

DRUGS (1)
  1. METOPROLOL (METOPROLOL SUCCINATE 25MG TAB, SA) [Suspect]
     Active Substance: METOPROLOL SUCCINATE
     Indication: CARDIAC OPERATION
     Route: 048
     Dates: start: 20210413, end: 20210415

REACTIONS (3)
  - Skin disorder [None]
  - Pruritus [None]
  - Urticaria [None]

NARRATIVE: CASE EVENT DATE: 20210414
